FAERS Safety Report 6129898-6 (Version None)
Quarter: 2009Q1

REPORT INFORMATION
  Report Type: 
  Country: None (occurrence: None)
  Receive Date: 20090324
  Receipt Date: 20090320
  Transmission Date: 20090719
  Serious: Yes (Death)
  Sender: FDA-Public Use
  Company Number: FR-BAYER-200911037GPV

PATIENT
  Age: 57 Year
  Sex: Male

DRUGS (16)
  1. FLUDARA [Suspect]
     Indication: CHRONIC LYMPHOCYTIC LEUKAEMIA
     Dosage: 40MG/M2/D, CYCLES EVERY 28 DAYS, 2 CYCLES
     Route: 048
  2. MABCAMPATH [Suspect]
     Indication: CHRONIC LYMPHOCYTIC LEUKAEMIA
     Dosage: CYCLES EVERY 28 DAYS, 2 CYCLES
     Route: 058
  3. CYCLOPHOSPHAMIDE [Suspect]
     Indication: CHRONIC LYMPHOCYTIC LEUKAEMIA
     Dosage: CYCLES EVERY 28 DAYS, 2 CYCLES
     Route: 048
  4. PLAVIX [Suspect]
     Indication: ANTICOAGULANT THERAPY
  5. EPO [Suspect]
     Dates: start: 20081222
  6. RITUXIMAB [Concomitant]
     Indication: CHRONIC LYMPHOCYTIC LEUKAEMIA
     Dosage: FIRST COURSE OF R-CHOP
     Route: 065
     Dates: start: 20081217
  7. CYCLOPHOSPHAMIDE W/VINCRISTINE/PREDNISONE [Concomitant]
     Indication: CHRONIC LYMPHOCYTIC LEUKAEMIA
     Dosage: FIRST COURSE OF R-CHOP
     Route: 065
     Dates: start: 20081217
  8. DOXORUBICIN HCL [Concomitant]
  9. NEUPOGEN [Concomitant]
     Dates: start: 20081222
  10. ISOPTIN [Concomitant]
     Indication: ANGINA PECTORIS
     Route: 065
  11. SPIRIVA [Concomitant]
     Indication: TOBACCO USER
     Route: 065
  12. BRIPETERAX [Concomitant]
     Indication: HYPERTENSION
     Route: 065
  13. PERINDOPRIL ERBUMINE [Concomitant]
     Indication: HYPERTENSION
     Route: 065
  14. TAHOR [Concomitant]
     Indication: HYPERCHOLESTEROLAEMIA
     Route: 065
  15. LASIX [Concomitant]
     Route: 065
  16. ZELITREX [Concomitant]
     Route: 065

REACTIONS (1)
  - HAEMORRHAGIC STROKE [None]
